FAERS Safety Report 24630441 (Version 1)
Quarter: 2024Q4

REPORT INFORMATION
  Report Type: Spontaneous
  Country: US (occurrence: None)
  Receive Date: 20241115
  Receipt Date: 20241115
  Transmission Date: 20250114
  Serious: Yes (Other)
  Sender: Public
  Company Number: None

PATIENT
  Sex: Female

DRUGS (12)
  1. BOTOX [Suspect]
     Active Substance: ONABOTULINUMTOXINA
     Indication: Migraine
     Dosage: FREQ: 200 UNITS TO BE INJECTED IN THE MUSCLE BY PHYSICIAN INTO HEAD/NECK AREA FOR CHRONIC MIGRAINE E
  2. MELATONIN [Suspect]
     Active Substance: MELATONIN
     Indication: Migraine
     Dates: start: 20220222
  3. ARMOUR THYROID [Concomitant]
     Active Substance: THYROID, PORCINE
  4. CARVEDILOL TAB 3.125MG [Concomitant]
  5. D2000 ULTRA STRENGTH [Concomitant]
  6. FLUTICASONE [Concomitant]
     Active Substance: FLUTICASONE
  7. LASIX TAB 20MG [Concomitant]
  8. LORATADINE TAB 10MG [Concomitant]
  9. MELOXICAM [Concomitant]
     Active Substance: MELOXICAM
  10. PRAVASTATIN TAB 40MG [Concomitant]
  11. PROVIGIL TAB 200MG [Concomitant]
  12. TELMISARTAN TAB 80MG [Concomitant]

REACTIONS (1)
  - Lung neoplasm malignant [None]
